FAERS Safety Report 25488455 (Version 2)
Quarter: 2025Q3

REPORT INFORMATION
  Report Type: Spontaneous
  Country: US (occurrence: US)
  Receive Date: 20250627
  Receipt Date: 20250822
  Transmission Date: 20251020
  Serious: No
  Sender: BAYER HEALTHCARE PHARMACEUTICALS INC.
  Company Number: US-BAYER-2025A084653

PATIENT
  Age: 22 Year
  Sex: Female

DRUGS (1)
  1. ESTRADIOL [Suspect]
     Active Substance: ESTRADIOL
     Dosage: 0.037 MG, OW
     Route: 062
     Dates: start: 2025

REACTIONS (2)
  - Device adhesion issue [None]
  - Wrong technique in product usage process [None]

NARRATIVE: CASE EVENT DATE: 20250601
